FAERS Safety Report 11356541 (Version 1)
Quarter: 2015Q3

REPORT INFORMATION
  Report Type: Spontaneous
  Country: US (occurrence: US)
  Receive Date: 20150807
  Receipt Date: 20150807
  Transmission Date: 20151125
  Serious: Yes (Death, Hospitalization)
  Sender: FDA-Public Use
  Company Number: US-BAYER-2015-393020

PATIENT
  Sex: Male

DRUGS (3)
  1. BAYER GENUINE ASPIRIN [Suspect]
     Active Substance: ASPIRIN
     Dosage: UNK UNK, OM
  2. AVAPRO [Concomitant]
     Active Substance: IRBESARTAN
     Dosage: UNK UNK, OM
  3. HYDROCHLOROTHIAZIDE. [Concomitant]
     Active Substance: HYDROCHLOROTHIAZIDE
     Dosage: UNK UNK, OM

REACTIONS (6)
  - Abdominal pain upper [None]
  - Death [Fatal]
  - Gastrointestinal haemorrhage [None]
  - Pain in extremity [None]
  - Cerebrovascular accident [None]
  - Bursitis [None]
